FAERS Safety Report 19420974 (Version 1)
Quarter: 2021Q2

REPORT INFORMATION
  Report Type: Spontaneous
  Country: DE (occurrence: DE)
  Receive Date: 20210615
  Receipt Date: 20210615
  Transmission Date: 20210717
  Serious: Yes (Other)
  Sender: FDA-Public Use
  Company Number: DE-TAKEDA-2021TUS037296

PATIENT
  Age: 21 Year
  Sex: Female

DRUGS (6)
  1. ASACOL [Concomitant]
     Active Substance: MESALAMINE
     Dosage: 3600 MILLIGRAM, BID
  2. PREDNISOLONE. [Concomitant]
     Active Substance: PREDNISOLONE
     Dosage: 50 MILLIGRAM
  3. AZATHIOPRINE. [Suspect]
     Active Substance: AZATHIOPRINE
     Indication: COLITIS ULCERATIVE
     Dosage: 50 MILLIGRAM
     Route: 065
  4. ENTYVIO [Suspect]
     Active Substance: VEDOLIZUMAB
     Indication: COLITIS ULCERATIVE
     Dosage: UNK
     Route: 058
  5. ADALIMUMAB [Concomitant]
     Active Substance: ADALIMUMAB
     Dosage: UNK
  6. CORTISONE [Concomitant]
     Active Substance: CORTISONE
     Dosage: 50 MILLIGRAM

REACTIONS (3)
  - Colitis ulcerative [Unknown]
  - Defaecation disorder [Unknown]
  - Drug ineffective [Unknown]
